FAERS Safety Report 4879775-3 (Version None)
Quarter: 2006Q1

REPORT INFORMATION
  Report Type: 
  Country: None (occurrence: None)
  Receive Date: 20060113
  Receipt Date: 20051201
  Transmission Date: 20060701
  Serious: Yes (Hospitalization)
  Sender: FDA-Public Use
  Company Number: CH-GLAXOSMITHKLINE-B0402485A

PATIENT
  Age: 18 Year
  Sex: Female

DRUGS (3)
  1. LAMICTAL [Suspect]
     Indication: BIPOLAR DISORDER
     Dosage: 100MG PER DAY
     Route: 048
     Dates: start: 20040601, end: 20051130
  2. AMPICILLIN SODIUM [Concomitant]
     Indication: APPENDICITIS
     Route: 048
     Dates: start: 20051120, end: 20051124
  3. CLARITHROMYCIN [Concomitant]
     Indication: APPENDICITIS
     Route: 048
     Dates: start: 20051124, end: 20051130

REACTIONS (6)
  - ABDOMINAL PAIN UPPER [None]
  - APPENDICITIS [None]
  - LYMPHADENOPATHY [None]
  - MUCOCUTANEOUS RASH [None]
  - RASH [None]
  - STEVENS-JOHNSON SYNDROME [None]
